FAERS Safety Report 23332426 (Version 1)
Quarter: 2023Q4

REPORT INFORMATION
  Report Type: Spontaneous
  Country: RU (occurrence: None)
  Receive Date: 20231222
  Receipt Date: 20231222
  Transmission Date: 20240110
  Serious: Yes (Other)
  Sender: FDA-Public Use
  Company Number: 2023A288146

PATIENT
  Age: 84 Year
  Sex: Female

DRUGS (4)
  1. PULMICORT TURBUHALER [Suspect]
     Active Substance: BUDESONIDE
     Indication: Cough
     Route: 055
  2. PULMICORT TURBUHALER [Suspect]
     Active Substance: BUDESONIDE
     Indication: Obstruction
     Route: 055
  3. ATROVENT [Concomitant]
     Active Substance: IPRATROPIUM BROMIDE
     Indication: Product used for unknown indication
  4. AZITHROMYCIN [Concomitant]
     Active Substance: AZITHROMYCIN
     Indication: Product used for unknown indication

REACTIONS (7)
  - Tachyarrhythmia [Unknown]
  - Atrial fibrillation [Unknown]
  - Pyrexia [Unknown]
  - Obstructive airways disorder [Unknown]
  - Cough [Unknown]
  - Intentional product misuse [Unknown]
  - Drug ineffective [Unknown]
